FAERS Safety Report 9238318 (Version 3)
Quarter: 2013Q2

REPORT INFORMATION
  Report Type: Spontaneous
  Country: JP (occurrence: JP)
  Receive Date: 20130418
  Receipt Date: 20130515
  Transmission Date: 20140414
  Serious: Yes (Other)
  Sender: FDA-Public Use
  Company Number: JP-JNJFOC-20130305430

PATIENT
  Age: 75 Year
  Sex: Female
  Weight: 42 kg

DRUGS (10)
  1. TRAMCET [Suspect]
     Indication: PAIN
     Route: 048
     Dates: start: 201210, end: 201301
  2. WARFARIN POTASSIUM [Concomitant]
     Indication: CARDIAC FAILURE CONGESTIVE
     Dosage: 1 DAILY
     Route: 048
  3. BLOPRESS [Concomitant]
     Indication: HYPERTENSION
     Dosage: 1 DAILY
     Route: 048
  4. LASIX [Concomitant]
     Indication: CARDIAC FAILURE CONGESTIVE
     Dosage: 1 DAILY
     Route: 048
  5. LASIX [Concomitant]
     Indication: RENAL FAILURE CHRONIC
     Dosage: 1 DAILY
     Route: 048
  6. ALLOPURINOL [Concomitant]
     Indication: HYPERURICAEMIA
     Dosage: 1 DAILY
     Route: 048
  7. CRESTOR [Concomitant]
     Indication: HYPERLIPIDAEMIA
     Dosage: 1 DAILY
     Route: 048
  8. FERROMIA [Concomitant]
     Indication: ANAEMIA
     Dosage: 1 DAILY
     Route: 048
  9. BONALON [Concomitant]
     Indication: RENAL FAILURE CHRONIC
     Dosage: 1 DAILY
     Route: 048
  10. ONEALFA [Concomitant]
     Indication: RENAL FAILURE CHRONIC
     Dosage: 1 DAILY
     Route: 048

REACTIONS (2)
  - Hepatitis C [Recovering/Resolving]
  - Liver disorder [Recovering/Resolving]
